FAERS Safety Report 7335513-6 (Version None)
Quarter: 2011Q1

REPORT INFORMATION
  Report Type: 
  Country: None (occurrence: None)
  Receive Date: 20110301
  Receipt Date: 20110301
  Transmission Date: 20110831
  Serious: No
  Sender: FDA-Public Use
  Company Number: None

PATIENT
  Age: 75 Year
  Sex: Male
  Weight: 89 kg

DRUGS (1)
  1. METFORMIN HCL [Suspect]
     Dosage: 500 MG HS PO
     Route: 048
     Dates: start: 20100730, end: 20110112

REACTIONS (3)
  - HAEMORRHAGE [None]
  - DERMATITIS [None]
  - URTICARIA [None]
